FAERS Safety Report 13688083 (Version 1)
Quarter: 2017Q2

REPORT INFORMATION
  Report Type: Spontaneous
  Country: US (occurrence: US)
  Receive Date: 20170626
  Receipt Date: 20170626
  Transmission Date: 20170830
  Serious: No
  Sender: FDA-Public Use
  Company Number: US-LUPIN PHARMACEUTICALS INC.-2017-01482

PATIENT
  Sex: Male

DRUGS (1)
  1. VORICONAZOLE ORAL SUSPENSION, 40 MG/ML [Suspect]
     Active Substance: VORICONAZOLE
     Indication: PRODUCT USED FOR UNKNOWN INDICATION
     Dosage: 2.5 ML, BID
     Route: 048
     Dates: end: 20170322

REACTIONS (2)
  - Expired product administered [Unknown]
  - No adverse event [Unknown]
